FAERS Safety Report 9163197 (Version 1)
Quarter: 2013Q1

REPORT INFORMATION
  Report Type: Spontaneous
  Country: US (occurrence: US)
  Receive Date: 20130314
  Receipt Date: 20130314
  Transmission Date: 20140127
  Serious: Yes (Hospitalization, Disabling, Other)
  Sender: FDA-Public Use
  Company Number: US-GLAXOSMITHKLINE-A1015116A

PATIENT
  Age: 82 Year
  Sex: Female

DRUGS (1)
  1. VOTRIENT [Suspect]
     Indication: RENAL CANCER
     Dosage: 800MG PER DAY
     Route: 048
     Dates: start: 201212, end: 20130224

REACTIONS (5)
  - Dehydration [Unknown]
  - Ill-defined disorder [Unknown]
  - Dysgeusia [Unknown]
  - Jaundice [Unknown]
  - Liver function test abnormal [Unknown]
